FAERS Safety Report 26083314 (Version 1)
Quarter: 2025Q4

REPORT INFORMATION
  Report Type: Spontaneous
  Country: US (occurrence: None)
  Receive Date: 20251124
  Receipt Date: 20251124
  Transmission Date: 20260117
  Serious: Yes (Life-Threatening, Hospitalization)
  Sender: FDA-CTU
  Company Number: None

PATIENT
  Age: 70 Year
  Sex: Male
  Weight: 77 kg

DRUGS (1)
  1. LISINOPRIL [Suspect]
     Active Substance: LISINOPRIL
     Dosage: FREQUENCY : DAILY;?
     Route: 048
     Dates: start: 20181231, end: 20241227

REACTIONS (6)
  - Angioedema [None]
  - Drug ineffective [None]
  - Swollen tongue [None]
  - Heart rate decreased [None]
  - Therapy change [None]
  - Hepatic enzyme abnormal [None]

NARRATIVE: CASE EVENT DATE: 20241227
